FAERS Safety Report 12988902 (Version 1)
Quarter: 2016Q4

REPORT INFORMATION
  Report Type: Report from Study
  Country: US (occurrence: US)
  Receive Date: 20161201
  Receipt Date: 20161201
  Transmission Date: 20170207
  Serious: No
  Sender: FDA-Public Use
  Company Number: US-AMGEN-USASL2016165631

PATIENT
  Age: 43 Year
  Sex: Male

DRUGS (2)
  1. ENBREL [Suspect]
     Active Substance: ETANERCEPT
     Indication: ANKYLOSING SPONDYLITIS
     Dosage: 50 MG, QWK
     Route: 065
  2. ENBREL [Suspect]
     Active Substance: ETANERCEPT
     Dosage: 50 MG, ( EVERY 2 OR 3 WEEKS)
     Route: 065

REACTIONS (5)
  - Back pain [Unknown]
  - Musculoskeletal chest pain [Unknown]
  - Arthralgia [Unknown]
  - Musculoskeletal pain [Unknown]
  - Intentional product misuse [Unknown]
